FAERS Safety Report 4393806-9 (Version None)
Quarter: 2004Q3

REPORT INFORMATION
  Report Type: 
  Country: None (occurrence: None)
  Receive Date: 20040709
  Receipt Date: 20030331
  Transmission Date: 20050211
  Serious: Yes (Death, Life-Threatening, Hospitalization, Disabling, Other)
  Sender: FDA-Public Use
  Company Number: FR-BRISTOL-MYERS SQUIBB COMPANY-12225264

PATIENT
  Age: 68 Year
  Sex: Male

DRUGS (4)
  1. CETUXIMAB [Suspect]
     Indication: COLORECTAL CANCER
     Dosage: 1STDOSE 20-MAR-02,WITHDRAWN FROM STUDY 03-MAY-02,MODE OF APPLICATION:IN AN INTERVAL      AL
     Route: 042
     Dates: start: 20020320, end: 20020503
  2. IRINOTECAN [Suspect]
     Indication: COLORECTAL CANCER
     Dosage: 1ST DOSE 20-MAR-02/WITHDRAWN FROM STUDY ON 03-MAY-02.MODE OF APPLICATION : IN AN INTERVAL
     Route: 042
     Dates: start: 20020417
  3. FLUOROURACIL [Suspect]
     Indication: COLORECTAL CANCER
     Dosage: DOSE AND THERAPY DATES NOT PROVIDED
     Route: 042
  4. FOLINIC ACID [Suspect]
     Indication: COLORECTAL CANCER
     Dosage: DOSE AND THERAPY DATES NOT PROVIDED
     Route: 042

REACTIONS (5)
  - ASTHENIA [None]
  - CACHEXIA [None]
  - COLORECTAL CANCER [None]
  - INTESTINAL OBSTRUCTION [None]
  - MALNUTRITION [None]
